FAERS Safety Report 9333490 (Version 4)
Quarter: 2014Q3

REPORT INFORMATION
  Report Type: Report from Study
  Country: AR (occurrence: AR)
  Receive Date: 20130606
  Receipt Date: 20140730
  Transmission Date: 20150326
  Serious: Yes (Other)
  Sender: FDA-Public Use
  Company Number: PHHY2013AR057447

PATIENT
  Sex: Female

DRUGS (2)
  1. DIOVAN D [Suspect]
     Active Substance: HYDROCHLOROTHIAZIDE\VALSARTAN
     Indication: HYPERTENSION
     Dosage: 1 DF (320/25 MG), DAILY
     Route: 048
  2. DIOVAN D [Suspect]
     Active Substance: HYDROCHLOROTHIAZIDE\VALSARTAN
     Dosage: 0.5 DF, DAILY

REACTIONS (4)
  - Arthralgia [Unknown]
  - Wrong technique in drug usage process [Unknown]
  - Cataract [Unknown]
  - Drug prescribing error [Unknown]
